FAERS Safety Report 9175032 (Version 2)
Quarter: 2014Q1

REPORT INFORMATION
  Report Type: Report from Study
  Country: FR (occurrence: FR)
  Receive Date: 20130320
  Receipt Date: 20140108
  Transmission Date: 20141002
  Serious: Yes (Other)
  Sender: FDA-Public Use
  Company Number: FR-GLAXOSMITHKLINE-B0876186A

PATIENT
  Age: 33 Year
  Sex: Female
  Weight: 55 kg

DRUGS (2)
  1. PAZOPANIB [Suspect]
     Indication: GASTROINTESTINAL STROMAL TUMOUR
     Dosage: 800MG PER DAY
     Route: 048
     Dates: start: 20120906
  2. ORACILLINE [Concomitant]
     Indication: INFECTION PROPHYLAXIS
     Dosage: 1MU PER DAY
     Route: 042
     Dates: start: 20120112

REACTIONS (1)
  - Glycosuria [Recovered/Resolved]
